FAERS Safety Report 18117100 (Version 1)
Quarter: 2020Q3

REPORT INFORMATION
  Report Type: Spontaneous
  Country: US (occurrence: US)
  Receive Date: 20200805
  Receipt Date: 20200805
  Transmission Date: 20201103
  Serious: Yes (Other)
  Sender: FDA-Public Use
  Company Number: US-FDC LIMITED-2020RIS00324

PATIENT
  Sex: Female
  Weight: 86.17 kg

DRUGS (4)
  1. DORZOLAMIDE [Concomitant]
     Active Substance: DORZOLAMIDE
  2. LATANOPROST. [Suspect]
     Active Substance: LATANOPROST
     Dosage: 2 DROPS IN EACH EYE, 1X/DAY AT NIGHT
     Route: 047
     Dates: start: 2005
  3. LATANOPROST. [Suspect]
     Active Substance: LATANOPROST
     Indication: GLAUCOMA
     Dosage: 2 DROPS IN EACH EYE, 1X/DAY AT NIGHT
     Route: 047
     Dates: start: 2005
  4. LATANOPROST. [Suspect]
     Active Substance: LATANOPROST
     Dosage: 2 DROPS IN EACH EYE, 1X/DAY AT NIGHT
     Route: 047
     Dates: start: 2005

REACTIONS (1)
  - Parkinson^s disease [Not Recovered/Not Resolved]

NARRATIVE: CASE EVENT DATE: 2017
